FAERS Safety Report 8327697-8 (Version None)
Quarter: 2012Q2

REPORT INFORMATION
  Report Type: 
  Country: None (occurrence: None)
  Receive Date: 20120502
  Receipt Date: 20120425
  Transmission Date: 20120825
  Serious: No
  Sender: FDA-Public Use
  Company Number: US-PFIZER INC-2012103396

PATIENT
  Sex: Female
  Weight: 67.12 kg

DRUGS (4)
  1. PREMPRO [Suspect]
     Indication: HORMONE REPLACEMENT THERAPY
     Dosage: 0.3/1.5 MG, DAILY
     Route: 048
     Dates: start: 20020101
  2. XANAX [Suspect]
     Indication: PANIC ATTACK
     Dosage: UNK, AS NEEDED
     Route: 048
     Dates: start: 20040101
  3. HYZAAR [Concomitant]
     Indication: HYPERTENSION
     Dosage: 100/25MG DAILY
  4. RANITIDINE [Concomitant]
     Indication: GASTROOESOPHAGEAL REFLUX DISEASE
     Dosage: 150 MG, DAILY

REACTIONS (4)
  - PANIC ATTACK [None]
  - MIGRAINE [None]
  - TREMOR [None]
  - HOT FLUSH [None]
